FAERS Safety Report 7932357-9 (Version None)
Quarter: 2011Q4

REPORT INFORMATION
  Report Type: 
  Country: None (occurrence: None)
  Receive Date: 20111121
  Receipt Date: 20111111
  Transmission Date: 20120403
  Serious: Yes (Other)
  Sender: FDA-Public Use
  Company Number: US-AMGEN-USASP2011059669

PATIENT
  Age: 60 Year
  Sex: Female

DRUGS (6)
  1. ANTIHYPERTENSIVES [Concomitant]
  2. CHOLESTEROL [Concomitant]
  3. METFORMIN HCL [Concomitant]
  4. ASPIRIN [Concomitant]
  5. MULTI-VITAMINS [Concomitant]
  6. PROLIA [Suspect]
     Indication: OSTEOPOROSIS POSTMENOPAUSAL
     Dosage: 60 MG, Q6MO
     Dates: start: 20110611, end: 20111111

REACTIONS (8)
  - ARTHRALGIA [None]
  - SPINAL OSTEOARTHRITIS [None]
  - NECK PAIN [None]
  - INFECTION [None]
  - PAIN [None]
  - ARTHRITIS [None]
  - ACTIVITIES OF DAILY LIVING IMPAIRED [None]
  - MOBILITY DECREASED [None]
